FAERS Safety Report 6027307-9 (Version None)
Quarter: 2009Q1

REPORT INFORMATION
  Report Type: 
  Country: None (occurrence: None)
  Receive Date: 20090105
  Receipt Date: 20090102
  Transmission Date: 20090719
  Serious: Yes (Other)
  Sender: FDA-Public Use
  Company Number: A0762064A

PATIENT
  Age: 64 Year
  Sex: Male

DRUGS (7)
  1. FLONASE [Suspect]
  2. VERAMYST [Suspect]
     Dosage: 1SPR TWICE PER DAY
     Route: 045
     Dates: start: 20081230
  3. DIPHENHYDRAMINE HCL [Concomitant]
  4. ROBITUSSIN DM [Concomitant]
  5. PSEUDOEPHEDRINE HCL [Concomitant]
  6. UNKNOWN GIVEN FOR HYPERCHOLESTEROLEMIA [Concomitant]
  7. UNKNOWN BLOOD PRESSURE MEDICATION [Concomitant]

REACTIONS (2)
  - APHONIA [None]
  - CATARACT [None]
